FAERS Safety Report 7033554-X (Version None)
Quarter: 2010Q4

REPORT INFORMATION
  Report Type: 
  Country: None (occurrence: None)
  Receive Date: 20101007
  Receipt Date: 20100924
  Transmission Date: 20110411
  Serious: Yes (Hospitalization, Other)
  Sender: FDA-Public Use
  Company Number: PHEH2009US13139

PATIENT
  Sex: Female

DRUGS (1)
  1. EXJADE [Suspect]
     Indication: SICKLE CELL ANAEMIA
     Dosage: 1250 MG, QD
     Route: 048

REACTIONS (7)
  - ANAEMIA [None]
  - HAEMOLYSIS [None]
  - MALAISE [None]
  - OEDEMA MOUTH [None]
  - OEDEMA PERIPHERAL [None]
  - SICKLE CELL ANAEMIA WITH CRISIS [None]
  - STAPHYLOCOCCAL INFECTION [None]
